FAERS Safety Report 8399582-7 (Version None)
Quarter: 2012Q2

REPORT INFORMATION
  Report Type: 
  Country: None (occurrence: None)
  Receive Date: 20120323
  Receipt Date: 20110718
  Transmission Date: 20120825
  Serious: Yes (Hospitalization)
  Sender: FDA-Public Use
  Company Number: 163-21880-11072220

PATIENT
  Age: 67 Year
  Sex: Male

DRUGS (9)
  1. PAROXETINE HCL (PAROXETINE HYDROCHLORIDE) (UNKNOWN) [Concomitant]
  2. NASAL DECONGESTANT (NASAL DECONGESTANTS FOR SYSTEMIC USE) (SPRAY (NOT [Concomitant]
  3. BENAZEPRIL HCL (BENAZEPRIL HYDROCHLORIDE) (UNKNOWN) [Concomitant]
  4. OXYCODONE HCL (OXYCODONE HYDROCHLORIDE) (UNKNOWN) [Concomitant]
  5. OXYCONTIN [Concomitant]
  6. FEXOFENADINE HCL (FEXOFENADINE HYDROCHLORIDE) (UNKNOWN) [Concomitant]
  7. WARFARIN SODIUM [Concomitant]
  8. SIMVASTATIN [Concomitant]
  9. REVLIMID [Suspect]
     Indication: MULTIPLE MYELOMA
     Dosage: 15 MG, DAILY FOR 21 DAYS, PO
     Route: 048
     Dates: start: 20110421

REACTIONS (2)
  - RIB FRACTURE [None]
  - FALL [None]
